FAERS Safety Report 5208622-5 (Version None)
Quarter: 2007Q1

REPORT INFORMATION
  Report Type: 
  Country: None (occurrence: None)
  Receive Date: 20070116
  Receipt Date: 20070109
  Transmission Date: 20070707
  Serious: Yes (Life-Threatening, Other)
  Sender: FDA-Public Use
  Company Number: PHBS2006JP20065

PATIENT
  Age: 41 Year
  Sex: Female
  Weight: 45 kg

DRUGS (2)
  1. NEORAL [Suspect]
     Indication: BONE MARROW TRANSPLANT
     Route: 048
  2. PROGRAF [Concomitant]
     Indication: BONE MARROW TRANSPLANT
     Route: 065

REACTIONS (5)
  - BRAIN DEATH [None]
  - CEREBRAL HAEMORRHAGE [None]
  - DRUG LEVEL INCREASED [None]
  - LEUKOENCEPHALOPATHY [None]
  - VISUAL DISTURBANCE [None]
